FAERS Safety Report 15448989 (Version 1)
Quarter: 2018Q3

REPORT INFORMATION
  Report Type: Spontaneous
  Country: US (occurrence: US)
  Receive Date: 20180925
  Receipt Date: 20180925
  Transmission Date: 20181010
  Serious: Yes (Hospitalization)
  Sender: FDA-Public Use
  Company Number: None

PATIENT
  Age: 61 Year
  Sex: Male
  Weight: 70.8 kg

DRUGS (25)
  1. ASCORBIC ACID. [Concomitant]
     Active Substance: ASCORBIC ACID
  2. MELATONIN [Concomitant]
     Active Substance: MELATONIN
  3. ENOXAPARIN [Concomitant]
     Active Substance: ENOXAPARIN
  4. FENTANYL. [Concomitant]
     Active Substance: FENTANYL
  5. OXYCODONE [Concomitant]
     Active Substance: OXYCODONE
  6. MUPIROCIN. [Concomitant]
     Active Substance: MUPIROCIN
  7. SODIUM PHOSPHATE [Concomitant]
     Active Substance: SODIUM PHOSPHATE
  8. EPCLUSA [Suspect]
     Active Substance: SOFOSBUVIR\VELPATASVIR
     Indication: HEPATITIS C
     Route: 048
     Dates: start: 20180319, end: 20180826
  9. POTASSIUM ACETATE. [Concomitant]
     Active Substance: POTASSIUM ACETATE
  10. POTASSIUM CHLORIDE. [Concomitant]
     Active Substance: POTASSIUM CHLORIDE
  11. POTASSIUM PHOSPHATE [Concomitant]
     Active Substance: POTASSIUM PHOSPHATE
  12. MAGNESIUM OXIDE. [Concomitant]
     Active Substance: MAGNESIUM OXIDE
  13. KETOROLAC [Concomitant]
     Active Substance: KETOROLAC\KETOROLAC TROMETHAMINE
  14. LIDOCAINE. [Concomitant]
     Active Substance: LIDOCAINE
  15. ACETAMINOHEN [Concomitant]
  16. MAGNESIUM SULFATE. [Concomitant]
     Active Substance: MAGNESIUM SULFATE
  17. CALCIUM CARBONATE ANTACID [Concomitant]
  18. TAMSULOSIN HCL [Concomitant]
     Active Substance: TAMSULOSIN HYDROCHLORIDE
  19. ONDANSETRON [Concomitant]
     Active Substance: ONDANSETRON
  20. POTASSIUM [Concomitant]
     Active Substance: POTASSIUM
  21. RIBAVIRIN 200MG [Suspect]
     Active Substance: RIBAVIRIN
     Route: 048
  22. LACTULOSE. [Concomitant]
     Active Substance: LACTULOSE
  23. CHLORHEXIDINE GLUCONATE. [Concomitant]
     Active Substance: CHLORHEXIDINE GLUCONATE
  24. FERROUS SULFATE. [Concomitant]
     Active Substance: FERROUS SULFATE
  25. RIFAXIMIN. [Concomitant]
     Active Substance: RIFAXIMIN

REACTIONS (11)
  - Headache [None]
  - Scapula fracture [None]
  - Laceration [None]
  - Rib fracture [None]
  - Arthralgia [None]
  - Loss of consciousness [None]
  - Injury [None]
  - Joint dislocation [None]
  - Road traffic accident [None]
  - Musculoskeletal pain [None]
  - Musculoskeletal chest pain [None]

NARRATIVE: CASE EVENT DATE: 20180713
